FAERS Safety Report 11184724 (Version 1)
Quarter: 2015Q2

REPORT INFORMATION
  Report Type: Spontaneous
  Country: JP (occurrence: JP)
  Receive Date: 20150612
  Receipt Date: 20150612
  Transmission Date: 20150821
  Serious: Yes (Other)
  Sender: FDA-Public Use
  Company Number: PHHY2015JP067739

PATIENT
  Age: 16 Year
  Sex: Male

DRUGS (30)
  1. PARACETAMOL [Suspect]
     Active Substance: ACETAMINOPHEN
     Route: 065
  2. LYSOZYME HYDROCHLORIDE [Concomitant]
     Active Substance: LYSOZYME HYDROCHLORIDE
     Indication: ABDOMINAL DISTENSION
  3. CLARITHROMYCIN. [Concomitant]
     Active Substance: CLARITHROMYCIN
     Indication: PYREXIA
  4. CARBOCYSTEINE [Concomitant]
     Active Substance: CARBOCYSTEINE
     Indication: ABDOMINAL PAIN
  5. MAOBUSHISAISHINTO [Concomitant]
     Indication: PYREXIA
  6. TRANEXAMIC ACID. [Concomitant]
     Active Substance: TRANEXAMIC ACID
     Indication: HEADACHE
  7. CARBOCYSTEINE [Concomitant]
     Active Substance: CARBOCYSTEINE
     Indication: ABDOMINAL DISTENSION
  8. CEFCAPENE PIVOXIL HYDROCHLORIDE [Concomitant]
     Active Substance: CEFCAPENE PIVOXIL HYDROCHLORIDE
     Indication: ABDOMINAL PAIN
  9. TRANEXAMIC ACID. [Concomitant]
     Active Substance: TRANEXAMIC ACID
     Indication: ABDOMINAL PAIN
  10. IBUPROFEN. [Concomitant]
     Active Substance: IBUPROFEN
     Indication: HEADACHE
  11. MAOBUSHISAISHINTO [Concomitant]
     Indication: ABDOMINAL PAIN
  12. MAOBUSHISAISHINTO [Concomitant]
     Indication: ABDOMINAL DISTENSION
  13. CEFCAPENE PIVOXIL HYDROCHLORIDE [Concomitant]
     Active Substance: CEFCAPENE PIVOXIL HYDROCHLORIDE
     Indication: HEADACHE
  14. CLARITHROMYCIN. [Concomitant]
     Active Substance: CLARITHROMYCIN
     Indication: HEADACHE
  15. LYSOZYME HYDROCHLORIDE [Concomitant]
     Active Substance: LYSOZYME HYDROCHLORIDE
     Indication: HEADACHE
  16. CLARITHROMYCIN. [Concomitant]
     Active Substance: CLARITHROMYCIN
     Indication: ABDOMINAL PAIN
  17. CARBOCYSTEINE [Concomitant]
     Active Substance: CARBOCYSTEINE
     Indication: HEADACHE
  18. IBUPROFEN. [Concomitant]
     Active Substance: IBUPROFEN
     Indication: PYREXIA
  19. MAOBUSHISAISHINTO [Concomitant]
     Indication: HEADACHE
  20. CEFCAPENE PIVOXIL HYDROCHLORIDE [Concomitant]
     Active Substance: CEFCAPENE PIVOXIL HYDROCHLORIDE
     Indication: PYREXIA
  21. TRANEXAMIC ACID. [Concomitant]
     Active Substance: TRANEXAMIC ACID
     Indication: PYREXIA
  22. IBUPROFEN. [Concomitant]
     Active Substance: IBUPROFEN
     Indication: ABDOMINAL PAIN
  23. PARACETAMOL [Suspect]
     Active Substance: ACETAMINOPHEN
     Indication: PYREXIA
  24. LYSOZYME HYDROCHLORIDE [Concomitant]
     Active Substance: LYSOZYME HYDROCHLORIDE
     Indication: PYREXIA
  25. LYSOZYME HYDROCHLORIDE [Concomitant]
     Active Substance: LYSOZYME HYDROCHLORIDE
     Indication: ABDOMINAL PAIN
  26. CLARITHROMYCIN. [Concomitant]
     Active Substance: CLARITHROMYCIN
     Indication: ABDOMINAL DISTENSION
  27. CARBOCYSTEINE [Concomitant]
     Active Substance: CARBOCYSTEINE
     Indication: PYREXIA
  28. IBUPROFEN. [Concomitant]
     Active Substance: IBUPROFEN
     Indication: ABDOMINAL DISTENSION
  29. CEFCAPENE PIVOXIL HYDROCHLORIDE [Concomitant]
     Active Substance: CEFCAPENE PIVOXIL HYDROCHLORIDE
     Indication: ABDOMINAL DISTENSION
  30. TRANEXAMIC ACID. [Concomitant]
     Active Substance: TRANEXAMIC ACID
     Indication: ABDOMINAL DISTENSION

REACTIONS (8)
  - Ascites [Unknown]
  - Necrosis [Recovering/Resolving]
  - Periportal oedema [Unknown]
  - Pericardial effusion [Recovered/Resolved]
  - Hyponatraemia [Unknown]
  - Drug-induced liver injury [Recovered/Resolved]
  - Pleural effusion [Recovered/Resolved]
  - Leukocytosis [Unknown]
